FAERS Safety Report 25888360 (Version 2)
Quarter: 2025Q4

REPORT INFORMATION
  Report Type: Report from Study
  Country: BR (occurrence: BR)
  Receive Date: 20251007
  Receipt Date: 20251018
  Transmission Date: 20260117
  Serious: Yes (Disabling, Other)
  Sender: CELLTRION
  Company Number: BR-CELLTRION INC.-2024BR025524

PATIENT

DRUGS (33)
  1. INFLIXIMAB-DYYB [Suspect]
     Active Substance: INFLIXIMAB-DYYB
     Indication: Ankylosing spondylitis
     Dosage: 400 MG DILUTED IN 250 ML, FOR TWO HOURS - EVERY 8 WEEKS
     Route: 042
     Dates: start: 20240808
  2. INFLIXIMAB-DYYB [Suspect]
     Active Substance: INFLIXIMAB-DYYB
     Dosage: 400 MG DILUTED IN 250 ML, FOR TWO HOURS - EVERY 8 WEEKS
     Route: 042
     Dates: start: 20240816
  3. INFLIXIMAB-DYYB [Suspect]
     Active Substance: INFLIXIMAB-DYYB
     Dosage: 5 AMPOULES EVERY 2 MONTHS
     Route: 042
     Dates: start: 20240816
  4. INFLIXIMAB-DYYB [Suspect]
     Active Substance: INFLIXIMAB-DYYB
     Dosage: 400 MG DILUTED IN 250 ML, FOR TWO HOURS - EVERY 8 WEEKS
     Route: 042
     Dates: start: 20240830
  5. INFLIXIMAB-DYYB [Suspect]
     Active Substance: INFLIXIMAB-DYYB
     Dosage: 400 MG DILUTED IN 250 ML, FOR TWO HOURS - EVERY 8 WEEKS
     Route: 042
     Dates: start: 20240927
  6. INFLIXIMAB-DYYB [Suspect]
     Active Substance: INFLIXIMAB-DYYB
     Dosage: 400 MG DILUTED IN 250 ML, FOR TWO HOURS - EVERY 8 WEEKS
     Route: 042
     Dates: start: 20241122
  7. INFLIXIMAB-DYYB [Suspect]
     Active Substance: INFLIXIMAB-DYYB
     Dosage: 400 MG DILUTED IN 250 ML, FOR TWO HOURS - EVERY 8 WEEKS
     Route: 042
     Dates: start: 20250117
  8. INFLIXIMAB-DYYB [Suspect]
     Active Substance: INFLIXIMAB-DYYB
     Dosage: 5 AMPOULES EVERY 2 MONTHS (START DATE: 3 MONTHS AGO)
     Route: 042
  9. DEXCHLORPHENIRAMINE [Concomitant]
     Active Substance: DEXCHLORPHENIRAMINE
     Indication: Prophylaxis
     Dosage: UNSPECIFIED DOSE, FOR 1 HOUR BEFORE THE INFUSIONS
     Route: 042
  10. FOLIC ACID [Concomitant]
     Active Substance: FOLIC ACID
     Indication: Ankylosing spondylitis
     Dosage: 2 PILLS A WEEK
     Route: 048
     Dates: start: 20240818
  11. FOLIC ACID [Concomitant]
     Active Substance: FOLIC ACID
     Dosage: 1 PILL A WEEK
  12. FOLIC ACID [Concomitant]
     Active Substance: FOLIC ACID
     Dosage: 2 PILLS A WEEK
     Dates: start: 20241006
  13. FOLIC ACID [Concomitant]
     Active Substance: FOLIC ACID
     Dosage: 1 PILL A WEEK
     Dates: start: 20241013
  14. FOLIC ACID [Concomitant]
     Active Substance: FOLIC ACID
     Indication: Adverse drug reaction
     Dosage: 1 TABLET PER WEEK (SUNDAY) / START DATE: 1 YEAR AND 2 MONTHS AGO
     Route: 065
  15. HYDROCORTISONE [Concomitant]
     Active Substance: HYDROCORTISONE
     Indication: Prophylaxis
     Dosage: AT AN UNSPECIFIED DOSE, FOR 1 HOUR BEFORE THE INFUSIONS
     Route: 042
     Dates: start: 20240808
  16. LANSOPRAZOLE [Concomitant]
     Active Substance: LANSOPRAZOLE
     Indication: Gastritis
     Dosage: 1 PILL AT MORNING (START DATE: 4 YEARS)
     Route: 048
  17. LANSOPRAZOLE [Concomitant]
     Active Substance: LANSOPRAZOLE
     Indication: Chronic gastritis
     Dosage: 1 TABLET PER DAY / START DATE: 4 YEARS AGO
     Route: 065
  18. LANSOPRAZOLE [Concomitant]
     Active Substance: LANSOPRAZOLE
     Indication: Gastrooesophageal reflux disease
  19. METHOTREXATE [Concomitant]
     Active Substance: METHOTREXATE
     Indication: Ankylosing spondylitis
     Dosage: 6 TABLETS, ONCE A WEEK (SATURDAY)
     Route: 065
  20. METHOTREXATE [Concomitant]
     Active Substance: METHOTREXATE
     Indication: Ankylosing spondylitis
     Dosage: 8 PILLS A WEEK
     Route: 048
     Dates: start: 20240817
  21. METHOTREXATE [Concomitant]
     Active Substance: METHOTREXATE
     Dosage: 6 PILLS A WEEK
  22. METHOTREXATE [Concomitant]
     Active Substance: METHOTREXATE
     Dosage: 8 PILLS A WEEK
     Dates: start: 20241005
  23. METHOTREXATE [Concomitant]
     Active Substance: METHOTREXATE
     Dosage: 6 PILLS A WEEK
     Dates: start: 20241012
  24. NARATRIPTAN [Concomitant]
     Active Substance: NARATRIPTAN HYDROCHLORIDE
     Indication: Migraine
     Dosage: 1 TABLET PER DAY
     Route: 065
  25. NAPROXEN [Concomitant]
     Active Substance: NAPROXEN
     Indication: Pain
     Dosage: 1 TABLET PER DAY
     Route: 065
  26. NAPROXEN [Concomitant]
     Active Substance: NAPROXEN
     Indication: Gait disturbance
  27. OMEGA 3 6 9 [OMEGA 9 FATTY ACIDS;OMEGA-3 FATTY ACIDS;OMEGA-6 FATTY ACI [Concomitant]
     Indication: Menopausal symptoms
     Dosage: 1 TABLET PER DAY FOR 1 WEEK
     Route: 065
  28. OMEGA 3 6 9 [OMEGA 9 FATTY ACIDS;OMEGA-3 FATTY ACIDS;OMEGA-6 FATTY ACI [Concomitant]
     Indication: Decreased immune responsiveness
  29. PAMELOR [Concomitant]
     Active Substance: NORTRIPTYLINE HYDROCHLORIDE
     Indication: Depression
     Dosage: 1 PILL AT NIGHT (START DATE: 15 YEARS)
     Route: 048
  30. PAMELOR [Concomitant]
     Active Substance: NORTRIPTYLINE HYDROCHLORIDE
     Indication: Migraine
  31. PAMELOR [Concomitant]
     Active Substance: NORTRIPTYLINE HYDROCHLORIDE
     Indication: Pain
  32. PAMELOR [Concomitant]
     Active Substance: NORTRIPTYLINE HYDROCHLORIDE
     Indication: Sleep disorder
  33. VITAMIN D NOS [Concomitant]
     Active Substance: CHOLECALCIFEROL\ERGOCALCIFEROL
     Indication: Supplementation therapy
     Dosage: 1 PILL A WEEK (EVERY TUESDAY)
     Route: 048

REACTIONS (19)
  - Blood pressure systolic decreased [Recovering/Resolving]
  - Hypothermia [Recovering/Resolving]
  - Atypical pneumonia [Recovered/Resolved with Sequelae]
  - Pneumonia [Recovering/Resolving]
  - Absence of immediate treatment response [Unknown]
  - Blood pressure systolic increased [Unknown]
  - Decreased appetite [Unknown]
  - Decreased immune responsiveness [Recovering/Resolving]
  - Joint lock [Unknown]
  - Oxygen saturation decreased [Recovering/Resolving]
  - Weight decreased [Unknown]
  - Headache [Recovering/Resolving]
  - Hypotension [Recovering/Resolving]
  - Influenza [Recovering/Resolving]
  - Insomnia [Recovering/Resolving]
  - Nausea [Unknown]
  - Inappropriate schedule of product administration [Unknown]
  - Intentional dose omission [Recovering/Resolving]
  - Underdose [Unknown]

NARRATIVE: CASE EVENT DATE: 20240819
